FAERS Safety Report 5307996-4 (Version None)
Quarter: 2007Q2

REPORT INFORMATION
  Report Type: 
  Country: None (occurrence: None)
  Receive Date: 20070426
  Receipt Date: 20070417
  Transmission Date: 20071010
  Serious: Yes (Hospitalization)
  Sender: FDA-Public Use
  Company Number: 2007CG00630

PATIENT
  Age: 29597 Day
  Sex: Male

DRUGS (7)
  1. NEXIUM [Suspect]
     Route: 048
     Dates: start: 20070227, end: 20070322
  2. LOZOL [Interacting]
     Indication: HYPERTENSION
     Dosage: 5 + 6.25 MG DAILY
     Route: 048
     Dates: end: 20070322
  3. TAHOR [Concomitant]
  4. ZANIDIP [Concomitant]
  5. PERINDOPRIL ERBUMINE [Concomitant]
  6. TANAKAN [Concomitant]
  7. PLAVIX [Concomitant]

REACTIONS (3)
  - APATHY [None]
  - DRUG INTERACTION [None]
  - HYPONATRAEMIA [None]
